FAERS Safety Report 18551592 (Version 1)
Quarter: 2020Q4

REPORT INFORMATION
  Report Type: Spontaneous
  Country: US (occurrence: US)
  Receive Date: 20201126
  Receipt Date: 20201126
  Transmission Date: 20210114
  Serious: Yes (Hospitalization)
  Sender: FDA-Public Use
  Company Number: US-009507513-2011USA014248

PATIENT
  Age: 52 Year
  Sex: Male

DRUGS (2)
  1. PRINIVIL [Suspect]
     Active Substance: LISINOPRIL
     Indication: PRODUCT USED FOR UNKNOWN INDICATION
     Route: 065
  2. COPAXONE [Suspect]
     Active Substance: GLATIRAMER ACETATE
     Indication: MULTIPLE SCLEROSIS
     Route: 065
     Dates: start: 20111114

REACTIONS (11)
  - Swollen tongue [Unknown]
  - Dyspnoea [Unknown]
  - Lip swelling [Unknown]
  - Cyanosis [Unknown]
  - Flushing [Unknown]
  - Pharyngeal swelling [Unknown]
  - Headache [Unknown]
  - Chest discomfort [Unknown]
  - Swelling face [Unknown]
  - Vomiting [Unknown]
  - Nausea [Unknown]

NARRATIVE: CASE EVENT DATE: 201409
